FAERS Safety Report 17637036 (Version 1)
Quarter: 2020Q2

REPORT INFORMATION
  Report Type: Spontaneous
  Country: US (occurrence: US)
  Receive Date: 20200406
  Receipt Date: 20200406
  Transmission Date: 20200713
  Serious: No
  Sender: FDA-Public Use
  Company Number: None

PATIENT
  Age: 19 Year
  Sex: Male
  Weight: 77.4 kg

DRUGS (4)
  1. BILASTINE [Concomitant]
     Active Substance: BILASTINE
  2. ADDERALL [Concomitant]
     Active Substance: AMPHETAMINE ASPARTATE\AMPHETAMINE SULFATE\DEXTROAMPHETAMINE SACCHARATE\DEXTROAMPHETAMINE SULFATE
  3. VITAMIN D3 [Concomitant]
     Active Substance: CHOLECALCIFEROL
  4. SINGULAIR [Suspect]
     Active Substance: MONTELUKAST SODIUM
     Indication: CONJUNCTIVITIS
     Dosage: ?          QUANTITY:28 TABLET(S);?
     Route: 048
     Dates: start: 20200227

REACTIONS (6)
  - Suicidal ideation [None]
  - Insomnia [None]
  - Cognitive disorder [None]
  - Confusional state [None]
  - Behaviour disorder [None]
  - Mood swings [None]

NARRATIVE: CASE EVENT DATE: 20200308
